FAERS Safety Report 5273792-X (Version None)
Quarter: 2007Q1

REPORT INFORMATION
  Report Type: 
  Country: None (occurrence: None)
  Receive Date: 20061219
  Receipt Date: 20060906
  Transmission Date: 20070707
  Serious: Yes (Other)
  Sender: FDA-Public Use
  Company Number: US-JNJFOC-20060901405

PATIENT
  Age: 26 Year
  Sex: Female
  Weight: 64.4108 kg

DRUGS (2)
  1. ORTHO EVRA [Suspect]
     Indication: CONTRACEPTION
     Dosage: TRANSDERMAL
     Route: 062
     Dates: start: 20040901, end: 20041229
  2. ALLEGRA D (ALLEGRA-D) [Concomitant]

REACTIONS (1)
  - CEREBROVASCULAR ACCIDENT [None]
